FAERS Safety Report 8990657 (Version 2)
Quarter: 2013Q1

REPORT INFORMATION
  Report Type: Spontaneous
  Country: BR (occurrence: BR)
  Receive Date: 20121228
  Receipt Date: 20130118
  Transmission Date: 20140127
  Serious: Yes (Life-Threatening)
  Sender: FDA-Public Use
  Company Number: BR-ROCHE-1174385

PATIENT
  Age: 65 Year
  Sex: Male

DRUGS (2)
  1. ACTILYSE [Suspect]
     Indication: ISCHAEMIC STROKE
     Route: 065
  2. CAPTOPRIL [Suspect]
     Indication: HYPERTENSION
     Route: 065

REACTIONS (3)
  - Angioedema [Unknown]
  - Respiratory distress [Unknown]
  - Speech disorder [Unknown]
